FAERS Safety Report 9619767 (Version 1)
Quarter: 2013Q4

REPORT INFORMATION
  Report Type: Spontaneous
  Country: GB (occurrence: GB)
  Receive Date: 20131014
  Receipt Date: 20131014
  Transmission Date: 20140711
  Serious: Yes (Hospitalization)
  Sender: FDA-Public Use
  Company Number: GB-BANPHARM-20131766

PATIENT
  Age: 33 Year
  Sex: Male
  Weight: 88 kg

DRUGS (4)
  1. IBUPROFEN UNKNOWN PRODUCT [Suspect]
     Indication: PAIN
     Dosage: 400 MG, TID,
     Route: 048
     Dates: start: 20130829
  2. CO-AMOXICLAV [Concomitant]
  3. FLUCLOXACILLIN [Concomitant]
  4. PARACETAMOL [Concomitant]

REACTIONS (1)
  - Upper gastrointestinal haemorrhage [Recovering/Resolving]
